FAERS Safety Report 9149223 (Version 1)
Quarter: 2013Q1

REPORT INFORMATION
  Report Type: Spontaneous
  Country: US (occurrence: None)
  Receive Date: 20130228
  Receipt Date: 20130228
  Transmission Date: 20140127
  Serious: Yes (Life-Threatening, Hospitalization, Other)
  Sender: FDA-Public Use
  Company Number: None

PATIENT
  Age: 61 Year
  Sex: Female
  Weight: 58.97 kg

DRUGS (1)
  1. BACTRIM [Suspect]
     Dosage: HOME 2 TIME, 2 PILLS TWICE A DAY
     Dates: start: 20120726

REACTIONS (1)
  - White blood cell count decreased [None]
